FAERS Safety Report 18943667 (Version 1)
Quarter: 2021Q1

REPORT INFORMATION
  Report Type: Other
  Country: DE (occurrence: DE)
  Receive Date: 20210226
  Receipt Date: 20210226
  Transmission Date: 20210420
  Serious: Yes (Other)
  Sender: FDA-Public Use
  Company Number: DE-ROCHE-2773961

PATIENT

DRUGS (6)
  1. ETANERCEPT [Suspect]
     Active Substance: ETANERCEPT
     Indication: STILL^S DISEASE
     Route: 065
  2. TOCILIZUMAB. [Suspect]
     Active Substance: TOCILIZUMAB
     Indication: STILL^S DISEASE
     Route: 065
  3. CANAKINUMAB. [Suspect]
     Active Substance: CANAKINUMAB
     Indication: STILL^S DISEASE
     Route: 065
  4. METHOTREXATE. [Suspect]
     Active Substance: METHOTREXATE
     Indication: STILL^S DISEASE
     Route: 065
  5. ANAKINRA [Suspect]
     Active Substance: ANAKINRA
     Indication: STILL^S DISEASE
     Route: 065
  6. INFLIXIMAB [Suspect]
     Active Substance: INFLIXIMAB
     Indication: STILL^S DISEASE
     Route: 065

REACTIONS (12)
  - Pyrexia [Unknown]
  - Still^s disease [Unknown]
  - Pneumonia [Unknown]
  - Bacterial infection [Unknown]
  - Tonsillitis [Unknown]
  - Bronchitis [Unknown]
  - Wound infection [Unknown]
  - Upper respiratory tract infection [Unknown]
  - Varicella [Unknown]
  - Abscess [Unknown]
  - Gastroenteritis [Unknown]
  - Skin infection [Unknown]
